FAERS Safety Report 7038581-4 (Version None)
Quarter: 2010Q4

REPORT INFORMATION
  Report Type: 
  Country: None (occurrence: None)
  Receive Date: 20101011
  Receipt Date: 20100722
  Transmission Date: 20110411
  Serious: Yes (Other)
  Sender: FDA-Public Use
  Company Number: US-PFIZER INC-2010092520

PATIENT
  Sex: Male

DRUGS (2)
  1. NEURONTIN [Suspect]
     Dosage: UNK
  2. LYRICA [Suspect]
     Dosage: UNK

REACTIONS (2)
  - DYSURIA [None]
  - PAIN [None]
